FAERS Safety Report 5818713-3 (Version None)
Quarter: 2008Q3

REPORT INFORMATION
  Report Type: 
  Country: None (occurrence: None)
  Receive Date: 20080723
  Receipt Date: 20080708
  Transmission Date: 20090109
  Serious: No
  Sender: FDA-Public Use
  Company Number: US-BAYER-200828227NA

PATIENT
  Age: 85 Year
  Sex: Male
  Weight: 101 kg

DRUGS (4)
  1. MAGNEVIST [Suspect]
     Indication: NUCLEAR MAGNETIC RESONANCE IMAGING
     Dosage: TOTAL DAILY DOSE: 20 ML  UNIT DOSE: 20 ML
     Route: 042
     Dates: start: 20080708, end: 20080708
  2. VICODIN [Concomitant]
     Indication: PAIN
     Dates: start: 20080708, end: 20080708
  3. HIGH BLOOD PRESSURE MEDS [Concomitant]
     Indication: HYPERTENSION
  4. DIABETIC MEDS [Concomitant]
     Indication: DIABETES MELLITUS

REACTIONS (4)
  - DYSPNOEA [None]
  - NAUSEA [None]
  - PRURITUS [None]
  - URTICARIA [None]
